FAERS Safety Report 21003377 (Version 1)
Quarter: 2022Q2

REPORT INFORMATION
  Report Type: Spontaneous
  Country: US (occurrence: None)
  Receive Date: 20220623
  Receipt Date: 20220623
  Transmission Date: 20220721
  Serious: Yes (Other)
  Sender: FDA-Public Use
  Company Number: None

PATIENT
  Age: 68 Year
  Sex: Male
  Weight: 58.95 kg

DRUGS (1)
  1. VIVITROL [Suspect]
     Active Substance: NALTREXONE
     Indication: Alcohol use disorder
     Dosage: FREQUENCY : MONTHLY;?
     Route: 030

REACTIONS (5)
  - Inflammation [None]
  - Injection site pain [None]
  - Injection site swelling [None]
  - Infection [None]
  - Post procedural complication [None]

NARRATIVE: CASE EVENT DATE: 20220618
